FAERS Safety Report 4604998-8 (Version None)
Quarter: 2005Q2

REPORT INFORMATION
  Report Type: 
  Country: None (occurrence: None)
  Receive Date: 20050217
  Receipt Date: 20041109
  Transmission Date: 20051028
  Serious: No
  Sender: FDA-Public Use
  Company Number: S04-USA-06869-01

PATIENT
  Age: 82 Year
  Sex: Female
  Weight: 57.1532 kg

DRUGS (8)
  1. NAMENDA [Suspect]
     Indication: DEMENTIA ALZHEIMER'S TYPE
     Dosage: 5 MG QHS PO
     Route: 048
     Dates: start: 20040708, end: 20040901
  2. EXELON (RIVASTIGMNIE TARTRATE) [Concomitant]
  3. VASOTEC [Concomitant]
  4. TIAZAC [Concomitant]
  5. ZOCOR [Concomitant]
  6. PREVACID [Concomitant]
  7. XANAX [Concomitant]
  8. LASIX [Concomitant]

REACTIONS (2)
  - AGITATION [None]
  - CONFUSIONAL STATE [None]
